FAERS Safety Report 12620098 (Version 1)
Quarter: 2016Q3

REPORT INFORMATION
  Report Type: Spontaneous
  Country: US (occurrence: US)
  Receive Date: 20160803
  Receipt Date: 20160803
  Transmission Date: 20161109
  Serious: No
  Sender: FDA-Public Use
  Company Number: US-ENDO PHARMACEUTICALS INC.-2016-003404

PATIENT
  Sex: Male
  Weight: 127.12 kg

DRUGS (4)
  1. TESTOPEL [Suspect]
     Active Substance: TESTOSTERONE
     Indication: BLOOD TESTOSTERONE DECREASED
     Dosage: 6 PELLETS
     Route: 065
     Dates: start: 2016
  2. TESTOPEL [Suspect]
     Active Substance: TESTOSTERONE
     Dosage: 12 TO 14 PELLETS
     Route: 065
     Dates: start: 201510
  3. TESTOPEL [Suspect]
     Active Substance: TESTOSTERONE
     Dosage: 4 TO 5 INSERTIONS OF 12 TO 14 PELLETS
     Route: 065
  4. TESTOPEL [Suspect]
     Active Substance: TESTOSTERONE
     Dosage: 6 PLUS PELLETS
     Route: 065
     Dates: start: 2012

REACTIONS (2)
  - Prescribed overdose [Recovered/Resolved]
  - Drug ineffective [Unknown]

NARRATIVE: CASE EVENT DATE: 2012
